FAERS Safety Report 5009823-1 (Version None)
Quarter: 2006Q2

REPORT INFORMATION
  Report Type: 
  Country: None (occurrence: None)
  Receive Date: 20060522
  Receipt Date: 20060510
  Transmission Date: 20061013
  Serious: Yes (Other)
  Sender: FDA-Public Use
  Company Number: 2006063305

PATIENT
  Age: 64 Year
  Sex: Female

DRUGS (1)
  1. XALATAN [Suspect]
     Indication: ILL-DEFINED DISORDER
     Dates: start: 20060101, end: 20060509

REACTIONS (3)
  - COUGH [None]
  - INCREASED UPPER AIRWAY SECRETION [None]
  - WHEEZING [None]
